FAERS Safety Report 6647526-8 (Version None)
Quarter: 2010Q1

REPORT INFORMATION
  Report Type: 
  Country: None (occurrence: None)
  Receive Date: 20100323
  Receipt Date: 20100323
  Transmission Date: 20100710
  Serious: Yes (Hospitalization)
  Sender: FDA-Public Use
  Company Number: None

PATIENT
  Age: 54 Year
  Sex: Male

DRUGS (1)
  1. METOPROLOL TARTRATE [Suspect]
     Dosage: 25 MG BID PO
     Route: 048
     Dates: start: 20091221, end: 20100318

REACTIONS (3)
  - BRADYCARDIA [None]
  - HYPOTENSION [None]
  - SICK SINUS SYNDROME [None]
